FAERS Safety Report 13290771 (Version 1)
Quarter: 2017Q1

REPORT INFORMATION
  Report Type: Spontaneous
  Country: CN (occurrence: CN)
  Receive Date: 20170302
  Receipt Date: 20170302
  Transmission Date: 20170428
  Serious: Yes (Other)
  Sender: FDA-Public Use
  Company Number: CN-BAYER-2017-037431

PATIENT
  Age: 66 Year
  Sex: Male
  Weight: 83 kg

DRUGS (4)
  1. GLUCOBAY [Suspect]
     Active Substance: ACARBOSE
     Indication: TYPE 2 DIABETES MELLITUS
     Dosage: 100 MG, TID
     Route: 048
     Dates: start: 20140122, end: 20160406
  2. METFORMIN [Suspect]
     Active Substance: METFORMIN HYDROCHLORIDE
     Dosage: 0.85 (UNIT UNSPECIFIED), TID
     Dates: start: 20140122
  3. INSULIN GLARGINE [Suspect]
     Active Substance: INSULIN GLARGINE
     Dosage: 22 U, UNK
     Dates: start: 20140122
  4. GLIMEPIRIDE. [Suspect]
     Active Substance: GLIMEPIRIDE
     Dosage: 5 MG, QD
     Dates: start: 20140122

REACTIONS (6)
  - Atrioventricular block complete [None]
  - Limb injury [None]
  - Face injury [None]
  - Syncope [None]
  - Weight decreased [None]
  - Fall [None]

NARRATIVE: CASE EVENT DATE: 20160310
